FAERS Safety Report 7175671-X (Version None)
Quarter: 2010Q4

REPORT INFORMATION
  Report Type: 
  Country: None (occurrence: None)
  Receive Date: 20101207
  Receipt Date: 20101130
  Transmission Date: 20110411
  Serious: Yes (Other)
  Sender: FDA-Public Use
  Company Number: CIP10002948

PATIENT
  Age: 24 Year
  Sex: Female

DRUGS (1)
  1. ASACOL [Suspect]
     Indication: COLITIS ULCERATIVE
     Dosage: ORAL
     Route: 048

REACTIONS (4)
  - CHEST PAIN [None]
  - EOSINOPHILIA [None]
  - PLEURAL EFFUSION [None]
  - WEGENER'S GRANULOMATOSIS [None]
